FAERS Safety Report 23596200 (Version 1)
Quarter: 2024Q1

REPORT INFORMATION
  Report Type: Spontaneous
  Country: US (occurrence: None)
  Receive Date: 20240304
  Receipt Date: 20240304
  Transmission Date: 20240409
  Serious: No
  Sender: FDA-Public Use
  Company Number: None

PATIENT
  Age: 88 Year
  Sex: 0

DRUGS (1)
  1. XDEMVY [Suspect]
     Active Substance: LOTILANER
     Dosage: FREQUENCY : TWICE A DAY;?
     Route: 047

REACTIONS (4)
  - Glossitis [None]
  - Nasal discomfort [None]
  - Swelling [None]
  - Hypoaesthesia oral [None]

NARRATIVE: CASE EVENT DATE: 20240304
